FAERS Safety Report 10184718 (Version 1)
Quarter: 2014Q2

REPORT INFORMATION
  Report Type: Report from Study
  Country: FR (occurrence: FR)
  Receive Date: 20140521
  Receipt Date: 20140521
  Transmission Date: 20141212
  Serious: Yes (Hospitalization)
  Sender: FDA-Public Use
  Company Number: FR-ROCHE-1402391

PATIENT
  Sex: Female

DRUGS (20)
  1. RITUXIMAB [Suspect]
     Indication: RHEUMATOID ARTHRITIS
     Dosage: DAY 1
     Route: 042
     Dates: start: 20061213
  2. RITUXIMAB [Suspect]
     Dosage: DAY 15
     Route: 042
     Dates: start: 20061227
  3. RITUXIMAB [Suspect]
     Route: 042
     Dates: start: 20070627
  4. RITUXIMAB [Suspect]
     Dosage: DAY 1
     Route: 042
     Dates: start: 20080131
  5. RITUXIMAB [Suspect]
     Dosage: DAY 15
     Route: 042
  6. RITUXIMAB [Suspect]
     Dosage: DAY 1
     Route: 042
     Dates: start: 20080908
  7. RITUXIMAB [Suspect]
     Route: 042
     Dates: start: 20080925
  8. RITUXIMAB [Suspect]
     Dosage: DAY 1
     Route: 042
     Dates: start: 20090717
  9. RITUXIMAB [Suspect]
     Dosage: DAY 15
     Route: 042
     Dates: start: 20090803
  10. RITUXIMAB [Suspect]
     Route: 042
     Dates: start: 20100507
  11. RITUXIMAB [Suspect]
     Dosage: DAY 15
     Route: 042
     Dates: start: 20100521
  12. RITUXIMAB [Suspect]
     Route: 042
     Dates: start: 20110906
  13. RITUXIMAB [Suspect]
     Route: 042
     Dates: start: 20120621, end: 20120621
  14. METHOTREXATE [Concomitant]
     Route: 065
  15. METHOTREXATE [Concomitant]
     Route: 065
  16. CORTANCYL [Concomitant]
     Route: 065
  17. CORTANCYL [Concomitant]
     Route: 065
  18. CORTANCYL [Concomitant]
     Route: 065
  19. CORTANCYL [Concomitant]
     Route: 065
  20. CORTANCYL [Concomitant]
     Route: 065

REACTIONS (4)
  - Fall [Not Recovered/Not Resolved]
  - Tibia fracture [Not Recovered/Not Resolved]
  - Tibia fracture [Not Recovered/Not Resolved]
  - Herpes zoster [Recovered/Resolved]
